FAERS Safety Report 24404302 (Version 1)
Quarter: 2024Q4

REPORT INFORMATION
  Report Type: Spontaneous
  Country: US (occurrence: US)
  Receive Date: 20241007
  Receipt Date: 20241007
  Transmission Date: 20250115
  Serious: Yes (Hospitalization, Other)
  Sender: HIKMA
  Company Number: US-MLMSERVICE-20240923-PI201954-00271-1

PATIENT
  Age: 66 Year
  Sex: Female

DRUGS (1)
  1. PREDNISONE [Suspect]
     Active Substance: PREDNISONE
     Indication: Pulmonary sarcoidosis
     Dosage: UNK
     Route: 065

REACTIONS (3)
  - Hypocalcaemia [Recovered/Resolved]
  - Blood 25-hydroxycholecalciferol decreased [Recovered/Resolved]
  - Blood 1,25-dihydroxycholecalciferol decreased [Recovered/Resolved]
